FAERS Safety Report 6912594-2 (Version None)
Quarter: 2010Q3

REPORT INFORMATION
  Report Type: 
  Country: None (occurrence: None)
  Receive Date: 20100806
  Receipt Date: 20080902
  Transmission Date: 20110219
  Serious: No
  Sender: FDA-Public Use
  Company Number: US-PFIZER INC-2008056770

PATIENT
  Sex: Female
  Weight: 88.9 kg

DRUGS (1)
  1. DETROL LA [Suspect]
     Indication: URGE INCONTINENCE
     Route: 048
     Dates: start: 20011201

REACTIONS (1)
  - GASTROOESOPHAGEAL REFLUX DISEASE [None]
